FAERS Safety Report 9742683 (Version 1)
Quarter: 2013Q4

REPORT INFORMATION
  Report Type: Spontaneous
  Country: US (occurrence: US)
  Receive Date: 20131210
  Receipt Date: 20131210
  Transmission Date: 20140711
  Serious: No
  Sender: FDA-Public Use
  Company Number: US-GILEAD-2009-0025371

PATIENT
  Sex: Female
  Weight: 78.47 kg

DRUGS (16)
  1. LETAIRIS [Suspect]
     Indication: PULMONARY ARTERIAL HYPERTENSION
     Route: 048
     Dates: start: 20081027
  2. COREG [Concomitant]
  3. NORVASC [Concomitant]
  4. ZEMPLAR [Concomitant]
  5. HYDRALAZINE [Concomitant]
  6. COZAAR [Concomitant]
  7. LASIX [Concomitant]
  8. METOPROLOL [Concomitant]
  9. OS-CAL [Concomitant]
  10. ASPIRIN [Concomitant]
  11. NEXIUM [Concomitant]
  12. KLOR-CON M20 [Concomitant]
  13. VYTORIN 10-20 [Concomitant]
  14. PLAVIX [Concomitant]
  15. ISOSORBIDE MN [Concomitant]
  16. CLONIDINE HCL [Concomitant]

REACTIONS (1)
  - Nasal congestion [Unknown]
